FAERS Safety Report 10019809 (Version 2)
Quarter: 2014Q1

REPORT INFORMATION
  Report Type: Spontaneous
  Country: US (occurrence: US)
  Receive Date: 20140318
  Receipt Date: 20140318
  Transmission Date: 20141002
  Serious: No
  Sender: FDA-Public Use
  Company Number: US-GALDERMA-US13004077

PATIENT
  Sex: Female

DRUGS (11)
  1. MIRVASO (BRIMONIDINE) TOPICAL GEL, 0.33% [Suspect]
     Indication: ROSACEA
     Dosage: 0.33%
     Route: 061
     Dates: start: 20131025
  2. LOSARTIN [Concomitant]
     Dosage: 50 MG
     Route: 048
  3. LEVETIRACETAM [Concomitant]
     Dosage: 1000 MG
     Route: 048
  4. DOXYCYCLINE HYCLATE [Concomitant]
     Dosage: 100 MG
     Route: 048
  5. CERAVE HYDRATING CLEANSER [Concomitant]
     Route: 061
  6. AMLACTIN [Concomitant]
     Route: 061
  7. AVEENO BODY WASH [Concomitant]
     Route: 061
  8. MONODOX [Concomitant]
     Route: 048
  9. PHENYTOIN SODIUM [Concomitant]
     Dosage: 100 MG
     Route: 048
  10. DIVALPROEX DELAYED [Concomitant]
     Dosage: 500 MG
     Route: 048
  11. MINERAL BASED COSMETICS [Concomitant]
     Route: 061

REACTIONS (6)
  - Rash maculo-papular [Recovered/Resolved]
  - Condition aggravated [Unknown]
  - Emotional distress [Recovered/Resolved]
  - Dry skin [Recovered/Resolved]
  - Erythema [Recovered/Resolved]
  - Pain of skin [Recovered/Resolved]
